FAERS Safety Report 5321966-1 (Version None)
Quarter: 2007Q2

REPORT INFORMATION
  Report Type: 
  Country: None (occurrence: None)
  Receive Date: 20070511
  Receipt Date: 20070504
  Transmission Date: 20071010
  Serious: Yes (Hospitalization)
  Sender: FDA-Public Use
  Company Number: AU-JNJFOC-20070501289

PATIENT
  Age: 21 Year
  Sex: Male

DRUGS (3)
  1. RISPERDAL CONSTA [Suspect]
     Indication: DRUG USE FOR UNKNOWN INDICATION
     Dosage: TITRATED UP TO EITHER 37.6 OR 60 MG
     Route: 030
  2. NICOTINE [Interacting]
     Indication: DRUG USE FOR UNKNOWN INDICATION
  3. CAFFEINE [Interacting]
     Indication: DRUG USE FOR UNKNOWN INDICATION

REACTIONS (5)
  - AGGRESSION [None]
  - DRUG INEFFECTIVE [None]
  - DRUG INTERACTION [None]
  - RESTLESSNESS [None]
  - SLEEP PHASE RHYTHM DISTURBANCE [None]
